FAERS Safety Report 20940245 (Version 3)
Quarter: 2022Q2

REPORT INFORMATION
  Report Type: Report from Study
  Country: TR (occurrence: TR)
  Receive Date: 20220609
  Receipt Date: 20220623
  Transmission Date: 20220720
  Serious: Yes (Other)
  Sender: FDA-Public Use
  Company Number: TR-TEVA-2022-TR-2043403

PATIENT

DRUGS (3)
  1. DEFERASIROX [Suspect]
     Active Substance: DEFERASIROX
     Indication: Thalassaemia
     Dosage: 20 MG/KG DAILY;
     Route: 048
  2. DEFERASIROX [Suspect]
     Active Substance: DEFERASIROX
     Dosage: INCREASED BY 5 MG/KG/D AT 9, 21, AND 30 MONTHS.
     Route: 048
  3. DEFERASIROX [Suspect]
     Active Substance: DEFERASIROX
     Dosage: 40 MG/KG DAILY;
     Route: 048

REACTIONS (1)
  - Ototoxicity [Recovered/Resolved]
